FAERS Safety Report 7648861-7 (Version None)
Quarter: 2011Q3

REPORT INFORMATION
  Report Type: 
  Country: None (occurrence: None)
  Receive Date: 20110801
  Receipt Date: 20110701
  Transmission Date: 20111222
  Serious: No
  Sender: FDA-Public Use
  Company Number: US-PFIZER INC-2011167096

PATIENT
  Age: 62 Year
  Sex: Female

DRUGS (10)
  1. METOPROLOL [Concomitant]
     Indication: HYPERTENSION
     Dosage: ^1 IN EVERY 12 HOURS^
     Dates: start: 20090101
  2. ASPIRIN [Concomitant]
     Indication: ANTICOAGULANT THERAPY
     Dosage: 81 MG, 1 IN EVERY 12 HOURS
     Dates: start: 20070101
  3. IBUPROFEN [Suspect]
     Indication: ARTHRITIS
     Dosage: 600 MG, UNK
     Route: 065
  4. LISINOPRIL [Concomitant]
     Indication: HYPERTENSION
     Dosage: ^1 IN EVERY 12 HOURS^
     Dates: start: 20090101
  5. TYLENOL-500 [Suspect]
     Indication: HEADACHE
     Dosage: 650 MG, UNK
     Route: 048
     Dates: start: 20090101
  6. ZYRTEC [Suspect]
     Indication: MULTIPLE ALLERGIES
     Dosage: ^1 IN EVERY 12 HOURS^
     Route: 065
     Dates: start: 20060101
  7. BISACODYL [Concomitant]
     Indication: CONSTIPATION
     Dosage: UNK
     Dates: start: 20100101
  8. TYLENOL-500 [Suspect]
     Indication: NECK PAIN
  9. CYCLOSPORINE [Concomitant]
     Indication: DRY EYE
     Dosage: ^2 IN EVERY 12 HOURS^
     Route: 047
     Dates: start: 20100101
  10. DULOXETINE HYDROCHLORIDE [Concomitant]
     Indication: PAIN
     Dosage: ^1 IN EVERY 12 HOURS^
     Route: 065
     Dates: start: 20090101

REACTIONS (1)
  - TINNITUS [None]
